FAERS Safety Report 5716128-X (Version None)
Quarter: 2008Q2

REPORT INFORMATION
  Report Type: 
  Country: None (occurrence: None)
  Receive Date: 20080424
  Receipt Date: 20080417
  Transmission Date: 20081010
  Serious: Yes (Other)
  Sender: FDA-Public Use
  Company Number: US-BAYER-200811528BCC

PATIENT
  Age: 54 Year
  Sex: Male
  Weight: 94 kg

DRUGS (4)
  1. ASPIRIN [Suspect]
     Indication: PAIN IN EXTREMITY
     Dosage: UNIT DOSE: 325 MG
     Route: 048
     Dates: start: 20030725
  2. ASPIRIN [Suspect]
     Dosage: AS USED: 650 MG  UNIT DOSE: 325 MG
     Route: 048
     Dates: start: 20030726, end: 20030726
  3. ASPIRIN [Suspect]
     Dosage: AS USED: 325 MG  UNIT DOSE: 325 MG
     Route: 048
  4. PROTONIX [Concomitant]

REACTIONS (4)
  - CARDIAC FAILURE [None]
  - CARDIOMYOPATHY [None]
  - MYOCARDIAL INFARCTION [None]
  - PAIN IN EXTREMITY [None]
